FAERS Safety Report 7325399-8 (Version None)
Quarter: 2011Q1

REPORT INFORMATION
  Report Type: 
  Country: None (occurrence: None)
  Receive Date: 20110302
  Receipt Date: 20110221
  Transmission Date: 20110831
  Serious: Yes (Hospitalization)
  Sender: FDA-Public Use
  Company Number: US-JNJFOC-20110208597

PATIENT
  Sex: Male
  Weight: 84.2 kg

DRUGS (10)
  1. REMICADE [Suspect]
     Route: 042
  2. MESALAMINE [Concomitant]
     Route: 048
  3. FOLIC ACID [Concomitant]
  4. PREVACID [Concomitant]
  5. URSODIOL [Concomitant]
  6. A MULTIVITAMIN [Concomitant]
  7. REMICADE [Suspect]
     Indication: CROHN'S DISEASE
     Route: 042
  8. REMICADE [Suspect]
     Route: 042
  9. BUDESONIDE [Concomitant]
  10. IRON [Concomitant]

REACTIONS (1)
  - CROHN'S DISEASE [None]
